FAERS Safety Report 4635384-2 (Version None)
Quarter: 2005Q2

REPORT INFORMATION
  Report Type: 
  Country: None (occurrence: None)
  Receive Date: 20050411
  Receipt Date: 20050329
  Transmission Date: 20051028
  Serious: Yes (Other)
  Sender: FDA-Public Use
  Company Number: 2005052161

PATIENT
  Age: 78 Year
  Sex: Female
  Weight: 71.2147 kg

DRUGS (9)
  1. NEURONTIN [Suspect]
     Indication: NEURALGIA
     Dosage: 600 MG (300 MG, 2 IN 1D),ORAL
     Route: 048
     Dates: start: 20031225, end: 20040101
  2. NORVASC [Suspect]
     Indication: BLOOD PRESSURE INADEQUATELY CONTROLLED
     Dosage: 5 MG (5 MG, 1 IN 1 D),ORAL
     Route: 048
     Dates: start: 20050318, end: 20050325
  3. LISINOPRIL [Concomitant]
  4. FURSOEMIDE (FUROSEMIDE) [Concomitant]
  5. ATENOLOL [Concomitant]
  6. LEVOTHYROXINE SODIUM [Concomitant]
  7. AMITRIPTYLINE HCL [Concomitant]
  8. ESOMEPRAZOLE (ESOMEPRAZOLE) [Concomitant]
  9. SIMVASTATIN [Concomitant]

REACTIONS (6)
  - BLOOD PRESSURE INADEQUATELY CONTROLLED [None]
  - BLOOD PRESSURE INCREASED [None]
  - CONDITION AGGRAVATED [None]
  - OEDEMA PERIPHERAL [None]
  - SURGERY [None]
  - THERAPY NON-RESPONDER [None]
